FAERS Safety Report 5719456-7 (Version None)
Quarter: 2008Q2

REPORT INFORMATION
  Report Type: 
  Country: None (occurrence: None)
  Receive Date: 20080428
  Receipt Date: 20080416
  Transmission Date: 20081010
  Serious: Yes (Hospitalization)
  Sender: FDA-Public Use
  Company Number: US-WYE-H03649508

PATIENT
  Sex: Female
  Weight: 72.64 kg

DRUGS (6)
  1. TORISEL [Suspect]
     Indication: RENAL CELL CARCINOMA
     Route: 042
     Dates: start: 20080201
  2. LEVOXYL [Concomitant]
     Indication: HYPOTHYROIDISM
  3. HYDROCHLOROTHIAZIDE [Concomitant]
     Indication: HYPERTENSION
  4. CARDIZEM CD [Concomitant]
     Indication: HYPERTENSION
  5. LIPITOR [Concomitant]
     Indication: HYPERLIPIDAEMIA
  6. PRINIVIL [Concomitant]
     Indication: HYPERTENSION

REACTIONS (1)
  - CEREBRAL INFARCTION [None]
